FAERS Safety Report 5944323-3 (Version None)
Quarter: 2008Q4

REPORT INFORMATION
  Report Type: 
  Country: None (occurrence: None)
  Receive Date: 20081105
  Receipt Date: 20081022
  Transmission Date: 20090506
  Serious: Yes (Hospitalization)
  Sender: FDA-Public Use
  Company Number: 2008SP002636

PATIENT
  Age: 55 Year
  Sex: Female

DRUGS (4)
  1. XOPENEX [Suspect]
     Indication: CHRONIC OBSTRUCTIVE PULMONARY DISEASE
     Dosage: 1.25 MG/3ML; BID; INHALATION, 1.25 MG/3ML; BID; INHALATION, 1.25 MG/3ML; BID; INHALATION
     Route: 055
     Dates: start: 20070813, end: 20070101
  2. XOPENEX [Suspect]
     Indication: CHRONIC OBSTRUCTIVE PULMONARY DISEASE
     Dosage: 1.25 MG/3ML; BID; INHALATION, 1.25 MG/3ML; BID; INHALATION, 1.25 MG/3ML; BID; INHALATION
     Route: 055
     Dates: start: 20080101, end: 20080501
  3. XOPENEX [Suspect]
     Indication: CHRONIC OBSTRUCTIVE PULMONARY DISEASE
     Dosage: 1.25 MG/3ML; BID; INHALATION, 1.25 MG/3ML; BID; INHALATION, 1.25 MG/3ML; BID; INHALATION
     Route: 055
     Dates: start: 20080701
  4. IPRATROPIUM BROMIDE [Concomitant]

REACTIONS (4)
  - EXPIRED DRUG ADMINISTERED [None]
  - LUNG NEOPLASM [None]
  - NERVOUSNESS [None]
  - PNEUMONIA [None]
